FAERS Safety Report 21741494 (Version 2)
Quarter: 2022Q4

REPORT INFORMATION
  Report Type: Spontaneous
  Country: JP (occurrence: JP)
  Receive Date: 20221216
  Receipt Date: 20221223
  Transmission Date: 20230113
  Serious: Yes (Hospitalization, Other)
  Sender: FDA-Public Use
  Company Number: JP-GILEAD-2022-0609025

PATIENT
  Age: 85 Year
  Sex: Male

DRUGS (2)
  1. VEMLIDY [Suspect]
     Active Substance: TENOFOVIR ALAFENAMIDE FUMARATE
     Indication: Hepatitis B
     Dosage: 25 MG
     Route: 048
     Dates: end: 20221213
  2. VEMLIDY [Suspect]
     Active Substance: TENOFOVIR ALAFENAMIDE FUMARATE
     Dosage: 25 MG, BID
     Route: 048
     Dates: start: 20221214

REACTIONS (2)
  - Hepatic cancer [Unknown]
  - Accidental overdose [Unknown]

NARRATIVE: CASE EVENT DATE: 20221214
